FAERS Safety Report 15423386 (Version 1)
Quarter: 2018Q3

REPORT INFORMATION
  Report Type: Report from Study
  Country: US (occurrence: US)
  Receive Date: 20180925
  Receipt Date: 20180925
  Transmission Date: 20181010
  Serious: No
  Sender: FDA-Public Use
  Company Number: PHEH2018US039053

PATIENT
  Sex: Male

DRUGS (1)
  1. COSENTYX [Suspect]
     Active Substance: SECUKINUMAB
     Indication: PSORIASIS
     Dosage: 150 MG, QMO
     Route: 058

REACTIONS (6)
  - Mood swings [Unknown]
  - Injection site pain [Unknown]
  - Paranoia [Unknown]
  - Skin exfoliation [Unknown]
  - Anger [Unknown]
  - Headache [Unknown]
